FAERS Safety Report 5513474-X (Version None)
Quarter: 2007Q4

REPORT INFORMATION
  Report Type: 
  Country: None (occurrence: None)
  Receive Date: 20071112
  Receipt Date: 20071031
  Transmission Date: 20080405
  Serious: Yes (Hospitalization)
  Sender: FDA-Public Use
  Company Number: FR-PFIZER INC-2007092083

PATIENT
  Age: 80 Year
  Sex: Female

DRUGS (1)
  1. LINEZOLID [Suspect]
     Dates: start: 20070816, end: 20070827

REACTIONS (1)
  - THROMBOPHLEBITIS [None]
